FAERS Safety Report 4719066-4 (Version None)
Quarter: 2005Q3

REPORT INFORMATION
  Report Type: 
  Country: None (occurrence: None)
  Receive Date: 20050719
  Receipt Date: 20050713
  Transmission Date: 20060218
  Serious: Yes (Hospitalization, Other)
  Sender: FDA-Public Use
  Company Number: 200510238BNE

PATIENT
  Age: 41 Year
  Sex: Female

DRUGS (1)
  1. AVELOX [Suspect]
     Indication: LOWER RESPIRATORY TRACT INFECTION
     Dosage: ONCE
     Dates: start: 20050217

REACTIONS (32)
  - ABASIA [None]
  - ASTHENIA [None]
  - BODY TEMPERATURE FLUCTUATION [None]
  - BONE PAIN [None]
  - CHEST PAIN [None]
  - CONVULSION [None]
  - DIZZINESS [None]
  - DRY MOUTH [None]
  - DYSGRAPHIA [None]
  - DYSKINESIA [None]
  - DYSPHAGIA [None]
  - DYSPNOEA [None]
  - DYSSTASIA [None]
  - FATIGUE [None]
  - FEELING ABNORMAL [None]
  - FORMICATION [None]
  - GLOSSODYNIA [None]
  - HEADACHE [None]
  - HEART RATE INCREASED [None]
  - HYPOAESTHESIA [None]
  - HYPOTENSION [None]
  - JOINT STIFFNESS [None]
  - MALAISE [None]
  - MUSCLE CONTRACTIONS INVOLUNTARY [None]
  - NASOPHARYNGITIS [None]
  - NECK PAIN [None]
  - NIGHTMARE [None]
  - PANIC DISORDER [None]
  - SENSORY DISTURBANCE [None]
  - SPEECH DISORDER [None]
  - TONGUE BLISTERING [None]
  - VISUAL ACUITY REDUCED [None]
